FAERS Safety Report 8757704 (Version 1)
Quarter: 2012Q4

REPORT INFORMATION
  Report Type: 
  Country: GB (occurrence: GB)
  Receive Date: 20120828
  Receipt Date: 20120828
  Transmission Date: 20130627
  Serious: Yes (Life-Threatening)
  Sender: FDA-Public Use
  Company Number: GB-BAUSCH-BL-2012-000506

PATIENT
  Sex: Male

DRUGS (1)
  1. CYCLOPENTOLATE [Suspect]
     Indication: MYDRIASIS
     Route: 047
     Dates: start: 20120724, end: 20120724

REACTIONS (7)
  - Anaphylactic reaction [Recovered/Resolved]
  - Ocular hyperaemia [Recovered/Resolved]
  - Feeling abnormal [Recovered/Resolved]
  - Convulsion [Recovered/Resolved]
  - Pruritus generalised [Recovered/Resolved]
  - Eye pruritus [Recovered/Resolved]
  - Syncope [Recovered/Resolved]
